FAERS Safety Report 8422594 (Version 5)
Quarter: 2013Q3

REPORT INFORMATION
  Report Type: Spontaneous
  Country: JP (occurrence: JP)
  Receive Date: 20120223
  Receipt Date: 20130911
  Transmission Date: 20140515
  Serious: Yes (Life-Threatening)
  Sender: FDA-Public Use
  Company Number: JP-ROCHE-1041500

PATIENT
  Age: 54 Year
  Sex: Female
  Weight: 59 kg

DRUGS (16)
  1. MIRCERA [Suspect]
     Indication: NEPHROGENIC ANAEMIA
     Route: 042
     Dates: start: 20111207, end: 20120201
  2. BAYASPIRIN [Concomitant]
     Indication: PROPHYLAXIS
     Route: 048
     Dates: start: 20100309
  3. FAMOTIDINE [Concomitant]
     Indication: GASTRITIS
     Route: 048
     Dates: start: 20100309
  4. RIBALL [Concomitant]
     Indication: HYPERURICAEMIA
     Route: 048
     Dates: start: 20100309, end: 20120318
  5. OLMETEC [Concomitant]
     Indication: HYPERTENSION
     Route: 048
     Dates: end: 20100308
  6. OLMETEC [Concomitant]
     Indication: HYPERTENSION
     Route: 048
     Dates: start: 20100309
  7. BENIDIPINE HYDROCHLORIDE [Concomitant]
     Indication: HYPERTENSION
     Route: 048
     Dates: start: 20100310, end: 20100317
  8. BENIDIPINE HYDROCHLORIDE [Concomitant]
     Indication: HYPERTENSION
     Route: 048
     Dates: start: 20100318, end: 20120318
  9. AMLODIPINE [Concomitant]
     Indication: HYPERTENSION
     Route: 048
  10. ARGAMATE [Concomitant]
     Indication: HYPERKALAEMIA
     Route: 048
     Dates: start: 20100324, end: 20120318
  11. SODIUM BICARBONATE [Concomitant]
     Indication: METABOLIC ACIDOSIS
     Route: 048
     Dates: start: 20100908, end: 20120318
  12. INNOLET 30R [Concomitant]
     Indication: TYPE 1 DIABETES MELLITUS
     Dosage: 22 AND 8 UNITS OF EVENING OF MORNING
     Route: 058
     Dates: end: 20100412
  13. INNOLET 30R [Concomitant]
     Indication: TYPE 1 DIABETES MELLITUS
     Dosage: 20 AND 8 UNITS OF EVENING OF MORNING
     Route: 058
     Dates: start: 20100413, end: 20100510
  14. INNOLET 30R [Concomitant]
     Indication: TYPE 1 DIABETES MELLITUS
     Dosage: 18 AND 6 UNITS OF EVENING OF MORNING
     Route: 058
     Dates: start: 20100511, end: 20100707
  15. INNOLET 30R [Concomitant]
     Indication: TYPE 1 DIABETES MELLITUS
     Dosage: 16 AND 4 UNITS OF EVENING OF MORNING
     Route: 058
     Dates: start: 20100708, end: 20100803
  16. INNOLET 30R [Concomitant]
     Indication: TYPE 1 DIABETES MELLITUS
     Dosage: 14 AND 4 UNITS OF EVENING OF MORNING
     Route: 058
     Dates: start: 20100804

REACTIONS (1)
  - Eosinophilic pneumonia acute [Recovering/Resolving]
